FAERS Safety Report 24589674 (Version 1)
Quarter: 2024Q4

REPORT INFORMATION
  Report Type: Spontaneous
  Country: US (occurrence: None)
  Receive Date: 20241106
  Receipt Date: 20241106
  Transmission Date: 20250114
  Serious: Yes (Other)
  Sender: Public
  Company Number: None

PATIENT
  Age: 55 Year
  Sex: Female
  Weight: 113 kg

DRUGS (1)
  1. OLIPUDASE ALFA [Suspect]
     Active Substance: OLIPUDASE ALFA
     Indication: Niemann-Pick disease
     Dosage: OTHER FREQUENCY : EVERY 2 WEEKS;?
     Route: 041

REACTIONS (5)
  - Ovarian cancer metastatic [None]
  - Metastases to peritoneum [None]
  - Metastases to liver [None]
  - Ascites [None]
  - Serous cystadenocarcinoma ovary [None]

NARRATIVE: CASE EVENT DATE: 20241026
